FAERS Safety Report 8041046-4 (Version None)
Quarter: 2012Q1

REPORT INFORMATION
  Report Type: 
  Country: None (occurrence: None)
  Receive Date: 20120109
  Receipt Date: 20111227
  Transmission Date: 20120608
  Serious: Yes (Hospitalization, Other)
  Sender: FDA-Public Use
  Company Number: 2011P1015335

PATIENT
  Age: 17 Year
  Sex: Male
  Weight: 63 kg

DRUGS (3)
  1. RISPERIDONE [Suspect]
     Indication: ATTENTION DEFICIT/HYPERACTIVITY DISORDER
     Dosage: .5 MG;BID 1.25 MG;BID .75 MG;QD
  2. CONCERTA [Suspect]
     Indication: ATTENTION DEFICIT/HYPERACTIVITY DISORDER
     Dosage: 27 MG;QD 54 MG;QD 36 MG;QD
  3. ARIPIPRAZOLE [Suspect]
     Indication: ATTENTION DEFICIT/HYPERACTIVITY DISORDER
     Dosage: 5 MG;HS

REACTIONS (2)
  - AGGRESSION [None]
  - PSYCHOTIC DISORDER [None]
